FAERS Safety Report 6676037-9 (Version None)
Quarter: 2010Q2

REPORT INFORMATION
  Report Type: 
  Country: None (occurrence: None)
  Receive Date: 20100412
  Receipt Date: 20100330
  Transmission Date: 20101027
  Serious: Yes (Hospitalization, Other)
  Sender: FDA-Public Use
  Company Number: US-RB-006644-10

PATIENT
  Age: 59 Year
  Sex: Female

DRUGS (2)
  1. MUCINEX DM [Suspect]
     Dosage: TOOK THE PRODUCT TWICE DAILY OR AS NEEDED FROM 01-DEC-2009 TILL 03-JAN-2010
     Route: 048
     Dates: start: 20091201
  2. ACTONEL [Concomitant]

REACTIONS (4)
  - BIPOLAR DISORDER [None]
  - INSOMNIA [None]
  - MALAISE [None]
  - SPEECH DISORDER [None]
